FAERS Safety Report 10177055 (Version 1)
Quarter: 2014Q2

REPORT INFORMATION
  Report Type: Spontaneous
  Country: US (occurrence: None)
  Receive Date: 20140515
  Receipt Date: 20140515
  Transmission Date: 20141212
  Serious: No
  Sender: FDA-Public Use
  Company Number: None

PATIENT
  Age: 78 Year
  Sex: Male
  Weight: 83 kg

DRUGS (4)
  1. ALEMTUZUMAB (CAMPATH) [Suspect]
  2. CYCLOPHOSPHAMIDE [Suspect]
  3. PENTOSTATIN [Suspect]
  4. RITUXIMAB (MOAB C2B8 ANTI CD20, CHIMERIC) [Suspect]

REACTIONS (10)
  - Pyrexia [None]
  - Confusional state [None]
  - Asthenia [None]
  - Dyspnoea [None]
  - Sepsis [None]
  - Renal failure [None]
  - Respiratory failure [None]
  - Fungaemia [None]
  - Encephalopathy [None]
  - Pneumonia pseudomonal [None]
